FAERS Safety Report 9160446 (Version 2)
Quarter: 2013Q1

REPORT INFORMATION
  Report Type: Spontaneous
  Country: US (occurrence: None)
  Receive Date: 20130219
  Receipt Date: 20130227
  Transmission Date: 20140127
  Serious: Yes (Hospitalization)
  Sender: FDA-Public Use
  Company Number: 2013SGN00058

PATIENT
  Age: 40 Year
  Sex: Male

DRUGS (5)
  1. BRENTUXIMAB VEDOTIN (BRENTUXIMAB VEDOTIN) INJECTION [Suspect]
     Indication: HODGKIN^S DISEASE
     Dates: start: 20121102, end: 20121214
  2. IFOSFAMIDE (IFOSFAMIDE) [Suspect]
     Indication: HODGKIN^S DISEASE
     Dates: start: 20121226, end: 20130114
  3. CARBOPLATIN (CARBOPLATIN) [Suspect]
     Indication: HODGKIN^S DISEASE
     Dates: start: 20121226, end: 20130114
  4. ETOPOSIDE (ETOPOSIDE PHOSPHATE) [Suspect]
     Indication: HODGKIN^S DISEASE
     Dates: start: 20121226, end: 20130114
  5. FILGRASTIM (FILGRASTIM) [Concomitant]

REACTIONS (2)
  - Febrile neutropenia [None]
  - Chest discomfort [None]
